FAERS Safety Report 23795491 (Version 10)
Quarter: 2024Q4

REPORT INFORMATION
  Report Type: Other
  Country: US (occurrence: US)
  Receive Date: 20240429
  Receipt Date: 20241118
  Transmission Date: 20250115
  Serious: Yes (Hospitalization, Other)
  Sender: TRAVERE THERAPEUTICS
  Company Number: US-TRAVERE-2024TVT00262

PATIENT
  Age: 40 Year
  Sex: Female

DRUGS (7)
  1. FILSPARI [Suspect]
     Active Substance: SPARSENTAN
     Indication: IgA nephropathy
     Route: 048
     Dates: start: 20240218
  2. FILSPARI [Suspect]
     Active Substance: SPARSENTAN
     Indication: Haematuria
     Route: 048
  3. FILSPARI [Suspect]
     Active Substance: SPARSENTAN
     Indication: Chronic kidney disease
     Dosage: EXPIRATION DATE-30-SEP-2024
     Route: 048
     Dates: start: 202404
  4. FILSPARI [Suspect]
     Active Substance: SPARSENTAN
     Dosage: TEMPORARILY STOPPED
     Route: 048
     Dates: end: 20240927
  5. FILSPARI [Suspect]
     Active Substance: SPARSENTAN
     Dosage: TEMPORARILY STOPPED
     Route: 048
  6. ALBUTEROL [Suspect]
     Active Substance: ALBUTEROL
     Indication: Product used for unknown indication
  7. FLUCONAZOLE [Concomitant]
     Active Substance: FLUCONAZOLE

REACTIONS (22)
  - Heart rate increased [None]
  - Hospitalisation [Unknown]
  - Myalgia [Recovered/Resolved]
  - Muscle spasms [Recovered/Resolved]
  - Muscular weakness [Unknown]
  - Pain in extremity [Unknown]
  - Pruritus [Unknown]
  - Musculoskeletal stiffness [Unknown]
  - Depressed mood [Unknown]
  - Laboratory test abnormal [Unknown]
  - Asthenia [Unknown]
  - Loss of personal independence in daily activities [Unknown]
  - Panic reaction [Unknown]
  - Fatigue [Unknown]
  - Asthma [Unknown]
  - Bone disorder [Unknown]
  - Dizziness [Unknown]
  - Limb discomfort [Unknown]
  - Poor peripheral circulation [Recovering/Resolving]
  - Coccidioidomycosis [None]
  - Peripheral swelling [None]
  - Liver function test decreased [Unknown]

NARRATIVE: CASE EVENT DATE: 20240301
